FAERS Safety Report 5458310-5 (Version None)
Quarter: 2007Q3

REPORT INFORMATION
  Report Type: 
  Country: None (occurrence: None)
  Receive Date: 20070919
  Receipt Date: 20070907
  Transmission Date: 20080115
  Serious: Yes (Hospitalization)
  Sender: FDA-Public Use
  Company Number: IT-AVENTIS-200716162GDDC

PATIENT
  Age: 52 Year
  Sex: Male

DRUGS (7)
  1. TAXOTERE [Suspect]
     Indication: PROSTATE CANCER
     Route: 042
     Dates: start: 20070519, end: 20070519
  2. LOBIVON [Suspect]
     Route: 048
  3. MEPRAL                             /00661201/ [Concomitant]
     Indication: PROPHYLAXIS
     Route: 048
  4. LAEVOLAC [Concomitant]
     Indication: PROPHYLAXIS
     Dosage: DOSE: UNK
     Route: 048
  5. KETOPROFEN [Concomitant]
     Route: 048
  6. DURAGESIC                          /00174601/ [Concomitant]
     Dosage: DOSE: 25 MCG/HOUR
  7. ENAPREN [Concomitant]
     Route: 048

REACTIONS (4)
  - DRUG INTERACTION [None]
  - LOSS OF CONSCIOUSNESS [None]
  - ORTHOSTATIC HYPOTENSION [None]
  - VISUAL ACUITY REDUCED [None]
